FAERS Safety Report 12500205 (Version 1)
Quarter: 2016Q2

REPORT INFORMATION
  Report Type: Spontaneous
  Country: ES (occurrence: ES)
  Receive Date: 20160627
  Receipt Date: 20160627
  Transmission Date: 20160815
  Serious: Yes (Other)
  Sender: FDA-Public Use
  Company Number: ES-GLAXOSMITHKLINE-ES2016087660

PATIENT
  Sex: Male

DRUGS (2)
  1. CIPROFLOXACINO [Suspect]
     Active Substance: CIPROFLOXACIN HYDROCHLORIDE
     Indication: HYDROCELE
     Dosage: UNK
     Route: 048
     Dates: start: 2016, end: 201601
  2. ZINNAT [Suspect]
     Active Substance: CEFUROXIME AXETIL
     Indication: HYDROCELE
     Dosage: 500 MG, UNK,1 EACH 12 HOURS
     Route: 048
     Dates: start: 20160601

REACTIONS (3)
  - Myalgia [Not Recovered/Not Resolved]
  - Headache [Not Recovered/Not Resolved]
  - Malaise [Not Recovered/Not Resolved]

NARRATIVE: CASE EVENT DATE: 20160602
